FAERS Safety Report 7967296-0 (Version None)
Quarter: 2011Q4

REPORT INFORMATION
  Report Type: 
  Country: None (occurrence: None)
  Receive Date: 20111122
  Receipt Date: 20110808
  Transmission Date: 20120403
  Serious: No
  Sender: FDA-Public Use
  Company Number: PHHY2011US61572

PATIENT
  Age: 56 Year
  Sex: Male
  Weight: 69 kg

DRUGS (6)
  1. LIPITOR [Concomitant]
  2. AMANTADINE HCL [Concomitant]
  3. GILENYA [Suspect]
     Indication: MULTIPLE SCLEROSIS
     Dosage: 0.5 MG, DAILY, ORAL
     Route: 048
     Dates: start: 20101101
  4. ZYRTEC [Concomitant]
  5. VITAMIN B COMPLEX CAP [Concomitant]
  6. VITAMIN D [Concomitant]

REACTIONS (4)
  - NASOPHARYNGITIS [None]
  - LYMPHOCYTE COUNT DECREASED [None]
  - UPPER RESPIRATORY TRACT INFECTION [None]
  - FATIGUE [None]
